FAERS Safety Report 8413000 (Version 13)
Quarter: 2013Q2

REPORT INFORMATION
  Report Type: Report from Study
  Country: DE (occurrence: DE)
  Receive Date: 20120217
  Receipt Date: 20130531
  Transmission Date: 20140414
  Serious: Yes (Death, Hospitalization)
  Sender: FDA-Public Use
  Company Number: DE-ROCHE-1040030

PATIENT
  Age: 61 Year
  Sex: Female
  Weight: 62 kg

DRUGS (6)
  1. VEMURAFENIB [Suspect]
     Indication: MALIGNANT MELANOMA
     Route: 048
     Dates: start: 20111223, end: 20120213
  2. METAMIZOL [Suspect]
     Indication: ARTHRALGIA
     Dosage: MIN 20 MAX DOSE 60
     Route: 065
     Dates: start: 20120120, end: 20120212
  3. ETORICOXIB [Concomitant]
     Route: 065
     Dates: start: 20120120
  4. LEVOTHYROXIN [Concomitant]
     Route: 065
     Dates: start: 2000
  5. KALIUMIODID [Concomitant]
     Route: 065
     Dates: start: 2000
  6. CITALOPRAM [Concomitant]
     Route: 065
     Dates: start: 2009

REACTIONS (2)
  - Pneumonia [Fatal]
  - Agranulocytosis [Fatal]
